FAERS Safety Report 15837457 (Version 4)
Quarter: 2019Q2

REPORT INFORMATION
  Report Type: Spontaneous
  Country: FR (occurrence: FR)
  Receive Date: 20190117
  Receipt Date: 20190423
  Transmission Date: 20190711
  Serious: Yes (Hospitalization)
  Sender: FDA-Public Use
  Company Number: FR-BAYER-2019-012160

PATIENT
  Age: 35 Year
  Sex: Male

DRUGS (1)
  1. KOVALTRY [Suspect]
     Active Substance: ANTIHEMOPHILIC FACTOR, HUMAN RECOMBINANT
     Dosage: 3000 IU, BIW, LAST DOSE BEFORE EVENT WAS RECEIVED IN SEP-2018
     Dates: start: 201706

REACTIONS (3)
  - Henoch-Schonlein purpura [Recovered/Resolved]
  - Hypersensitivity vasculitis [None]
  - Erythema [Recovered/Resolved]

NARRATIVE: CASE EVENT DATE: 201809
